FAERS Safety Report 5497810-9 (Version None)
Quarter: 2007Q4

REPORT INFORMATION
  Report Type: 
  Country: None (occurrence: None)
  Receive Date: 20071025
  Receipt Date: 20070305
  Transmission Date: 20080405
  Serious: No
  Sender: FDA-Public Use
  Company Number: A0641899A

PATIENT
  Age: 76 Year
  Sex: Male

DRUGS (21)
  1. ADVAIR DISKUS 100/50 [Suspect]
     Indication: CHRONIC OBSTRUCTIVE PULMONARY DISEASE
     Dosage: 1PUFF TWICE PER DAY
     Route: 055
  2. NITROSTAT [Concomitant]
  3. DILTIAZEM [Concomitant]
  4. THEO-24 [Concomitant]
  5. UNKNOWN MEDICATION [Concomitant]
  6. SPIRONOLACTONE [Concomitant]
  7. FLOMAX [Concomitant]
  8. WELLBUTRIN [Concomitant]
  9. LIPITOR [Concomitant]
  10. IPRATROPIUM BROMIDE [Concomitant]
  11. NEXIUM [Concomitant]
  12. COMBIVENT [Concomitant]
  13. ALBUTEROL [Concomitant]
  14. PATANOL [Concomitant]
  15. RESTASIS [Concomitant]
  16. ASPIRIN [Concomitant]
  17. MUCINEX [Concomitant]
  18. VITAMIN B COMPLEX CAP [Concomitant]
  19. REFRESH [Concomitant]
  20. UNKNOWN MEDICATION [Concomitant]
  21. VISINE EYE DROPS [Concomitant]

REACTIONS (4)
  - DRY EYE [None]
  - EYE DISORDER [None]
  - LACRIMATION INCREASED [None]
  - PHOTOSENSITIVITY REACTION [None]
